FAERS Safety Report 4984053-8 (Version None)
Quarter: 2006Q1

REPORT INFORMATION
  Report Type: 
  Country: None (occurrence: None)
  Receive Date: 20060302
  Receipt Date: 20051104
  Transmission Date: 20060701
  Serious: Yes (Other)
  Sender: FDA-Public Use
  Company Number: S05-USA-04834-01

PATIENT
  Age: 25 Year
  Sex: Male

DRUGS (5)
  1. CAMPRAL [Suspect]
     Indication: ALCOHOLISM
     Dosage: 666 MG TID PO
     Route: 048
     Dates: start: 20051026
  2. ALCOHOL (ALCOHOL) [Suspect]
     Dates: start: 20051103, end: 20051103
  3. METHADONE HCL [Concomitant]
  4. KLONOPIN [Concomitant]
  5. ELAVIL [Concomitant]

REACTIONS (3)
  - AMNESIA [None]
  - ANGER [None]
  - DEPRESSION [None]
